FAERS Safety Report 13929136 (Version 1)
Quarter: 2017Q3

REPORT INFORMATION
  Report Type: Report from Study
  Country: None (occurrence: GB)
  Receive Date: 20170901
  Receipt Date: 20170901
  Transmission Date: 20171127
  Serious: Yes (Hospitalization, Other)
  Sender: FDA-Public Use
  Company Number: GB-ABBVIE-11P-167-0721895-00

PATIENT
  Age: 51 Year
  Sex: Male
  Weight: 69.5 kg

DRUGS (2)
  1. HUMIRA [Suspect]
     Active Substance: ADALIMUMAB
     Indication: PSORIASIS
     Route: 058
     Dates: start: 20090318, end: 20101018
  2. CETIRIZINE [Concomitant]
     Active Substance: CETIRIZINE HYDROCHLORIDE
     Indication: PRODUCT USED FOR UNKNOWN INDICATION
     Route: 065
     Dates: start: 20090430

REACTIONS (11)
  - Streptococcal abscess [Recovered/Resolved]
  - Hemianopia homonymous [Unknown]
  - Cognitive disorder [Unknown]
  - Sensory disturbance [Unknown]
  - CNS ventriculitis [Recovered/Resolved]
  - Syncope [Recovered/Resolved]
  - Pulmonary embolism [Recovered/Resolved]
  - Headache [Recovered/Resolved]
  - Pneumothorax [Recovered/Resolved]
  - Epilepsy [Unknown]
  - Mobility decreased [Unknown]

NARRATIVE: CASE EVENT DATE: 2010
